FAERS Safety Report 12863823 (Version 12)
Quarter: 2018Q3

REPORT INFORMATION
  Report Type: Report from Study
  Country: US (occurrence: US)
  Receive Date: 20161019
  Receipt Date: 20180703
  Transmission Date: 20181010
  Serious: Yes (Hospitalization, Other)
  Sender: FDA-Public Use
  Company Number: US-ACTELION-A-NJ2016-143757

PATIENT
  Age: 80 Year
  Sex: Female

DRUGS (25)
  1. UPTRAVI [Suspect]
     Active Substance: SELEXIPAG
     Dosage: 1600 MCG, BID
     Route: 048
  2. POTASSIUM CHLORIDE. [Concomitant]
     Active Substance: POTASSIUM CHLORIDE
  3. DIGOXIN. [Concomitant]
     Active Substance: DIGOXIN
  4. DOXYCYCLINE. [Concomitant]
     Active Substance: DOXYCYCLINE
  5. AMBRISENTAN [Suspect]
     Active Substance: AMBRISENTAN
     Indication: PULMONARY HYPERTENSION
     Dosage: 10 MG, QD
     Route: 048
     Dates: start: 20140122
  6. UPTRAVI [Suspect]
     Active Substance: SELEXIPAG
     Indication: PULMONARY ARTERIAL HYPERTENSION
     Dosage: 400 MCG, BID
     Route: 048
  7. UPTRAVI [Suspect]
     Active Substance: SELEXIPAG
     Dosage: 800 MCG, QAM
     Route: 048
     Dates: start: 20160929
  8. SPIRONOLACTONE. [Concomitant]
     Active Substance: SPIRONOLACTONE
  9. UPTRAVI [Suspect]
     Active Substance: SELEXIPAG
     Dosage: 600 MCG, QPM
     Route: 048
     Dates: start: 20160929
  10. UPTRAVI [Suspect]
     Active Substance: SELEXIPAG
     Dosage: UNK
     Route: 048
     Dates: start: 20160926
  11. CARVEDILOL. [Concomitant]
     Active Substance: CARVEDILOL
  12. UPTRAVI [Suspect]
     Active Substance: SELEXIPAG
     Dosage: 100 MCG, BID
     Route: 048
  13. ASA [Concomitant]
     Active Substance: ASPIRIN
  14. UPTRAVI [Suspect]
     Active Substance: SELEXIPAG
     Dosage: 1400 MCG, BID
     Route: 048
  15. UPTRAVI [Suspect]
     Active Substance: SELEXIPAG
     Dosage: 1000 MCG, BID
     Route: 048
     Dates: start: 20170616
  16. ADCIRCA [Suspect]
     Active Substance: TADALAFIL
     Indication: PULMONARY HYPERTENSION
     Dosage: 40 MG, QD
     Route: 048
     Dates: start: 20140306
  17. MAGNESIUM OXIDE. [Concomitant]
     Active Substance: MAGNESIUM OXIDE
  18. RESTASIS [Concomitant]
     Active Substance: CYCLOSPORINE
  19. FUROSEMIDE. [Concomitant]
     Active Substance: FUROSEMIDE
  20. UPTRAVI [Suspect]
     Active Substance: SELEXIPAG
     Dosage: 1200 MCG, BID
     Route: 048
     Dates: start: 20160927
  21. ATORVASTATIN [Concomitant]
     Active Substance: ATORVASTATIN
  22. UPTRAVI [Suspect]
     Active Substance: SELEXIPAG
     Dosage: 1200 MCG, BID
     Route: 048
     Dates: start: 20160927
  23. SYNTHROID [Concomitant]
     Active Substance: LEVOTHYROXINE SODIUM
  24. VITAMIN B12 [Concomitant]
     Active Substance: CYANOCOBALAMIN
  25. METFORMIN [Concomitant]
     Active Substance: METFORMIN HYDROCHLORIDE

REACTIONS (25)
  - Hot flush [Not Recovered/Not Resolved]
  - Nasal congestion [Not Recovered/Not Resolved]
  - Musculoskeletal pain [Not Recovered/Not Resolved]
  - Nausea [Not Recovered/Not Resolved]
  - Ageusia [Unknown]
  - Diarrhoea [Not Recovered/Not Resolved]
  - Headache [Recovered/Resolved]
  - Nasopharyngitis [Not Recovered/Not Resolved]
  - Vomiting [Not Recovered/Not Resolved]
  - Muscle spasms [Unknown]
  - Oedema peripheral [Recovering/Resolving]
  - Condition aggravated [Not Recovered/Not Resolved]
  - Decreased appetite [Not Recovered/Not Resolved]
  - Head discomfort [Unknown]
  - Neck pain [Not Recovered/Not Resolved]
  - Fatigue [Unknown]
  - Lacrimation increased [Unknown]
  - Dyspnoea [Unknown]
  - Swelling [Recovering/Resolving]
  - Pain in extremity [Not Recovered/Not Resolved]
  - Pain [Not Recovered/Not Resolved]
  - Cough [Unknown]
  - Myalgia [Not Recovered/Not Resolved]
  - Oedema [Recovering/Resolving]
  - Feeling abnormal [Unknown]

NARRATIVE: CASE EVENT DATE: 20160929
